FAERS Safety Report 18628351 (Version 1)
Quarter: 2020Q4

REPORT INFORMATION
  Report Type: Spontaneous
  Country: US (occurrence: US)
  Receive Date: 20201217
  Receipt Date: 20201217
  Transmission Date: 20210114
  Serious: No
  Sender: FDA-Public Use
  Company Number: US-TEVA-2020-US-1858212

PATIENT
  Age: 69 Year
  Sex: Female

DRUGS (1)
  1. QVAR REDIHALER [Suspect]
     Active Substance: BECLOMETHASONE DIPROPIONATE
     Indication: ASTHMA
     Route: 065
     Dates: start: 202011, end: 2020

REACTIONS (5)
  - Asthma [Unknown]
  - Fear [Unknown]
  - Drug ineffective [Unknown]
  - Cough [Unknown]
  - Tremor [Unknown]

NARRATIVE: CASE EVENT DATE: 2020
